FAERS Safety Report 5814661-3 (Version None)
Quarter: 2008Q3

REPORT INFORMATION
  Report Type: 
  Country: None (occurrence: None)
  Receive Date: 20080718
  Receipt Date: 20080112
  Transmission Date: 20090109
  Serious: No
  Sender: FDA-Public Use
  Company Number: US-KINGPHARMUSA00001-K200800043

PATIENT

DRUGS (8)
  1. LEVOXYL [Suspect]
     Indication: HYPOTHYROIDISM
     Dosage: 150 MCG, UNK
     Route: 048
     Dates: end: 20071201
  2. LEVOXYL [Suspect]
     Dosage: 175 MCG (ALTERNATING WITH 150 MCG)
     Route: 048
     Dates: end: 20071201
  3. LEVOXYL [Suspect]
     Dosage: 150 MCG, QD
     Route: 065
     Dates: start: 20071201
  4. PROVIGIL [Concomitant]
     Dosage: 300 MG QD
     Route: 048
  5. ACIPHEX [Concomitant]
  6. CITALOPRAM HYDROBROMIDE [Concomitant]
  7. OXYCODONE HCL [Concomitant]
     Dosage: UNK, PRN
  8. ALLEGRA-D                          /01367401/ [Concomitant]
     Dosage: UNK, PRN

REACTIONS (1)
  - THYROID FUNCTION TEST ABNORMAL [None]
